FAERS Safety Report 8918316 (Version 1)
Quarter: 2012Q4

REPORT INFORMATION
  Report Type: 
  Country: US (occurrence: US)
  Receive Date: 20121120
  Receipt Date: 20121120
  Transmission Date: 20130627
  Serious: No
  Sender: FDA-Public Use
  Company Number: US-ASTRAZENECA-2012SE25963

PATIENT
  Sex: Female

DRUGS (4)
  1. NEXIUM [Suspect]
     Indication: GASTRIC DISORDER
     Route: 048
  2. NEXIUM [Suspect]
     Indication: NAUSEA
     Route: 048
  3. NEXIUM [Suspect]
     Indication: GASTRIC DISORDER
     Route: 048
  4. NEXIUM [Suspect]
     Indication: NAUSEA
     Route: 048

REACTIONS (5)
  - Polyp [Unknown]
  - Sleep disorder due to general medical condition, insomnia type [Unknown]
  - Nausea [Unknown]
  - Off label use [Unknown]
  - Drug ineffective for unapproved indication [Unknown]
